FAERS Safety Report 13061834 (Version 9)
Quarter: 2019Q3

REPORT INFORMATION
  Report Type: Spontaneous
  Country: US (occurrence: US)
  Receive Date: 20161226
  Receipt Date: 20190703
  Transmission Date: 20191004
  Serious: No
  Sender: FDA-Public Use
  Company Number: US-ASTRAZENECA-2016SF12739

PATIENT
  Age: 17016 Day
  Sex: Female
  Weight: 109.8 kg

DRUGS (11)
  1. BYDUREON [Suspect]
     Active Substance: EXENATIDE
     Indication: TYPE 2 DIABETES MELLITUS
     Route: 058
  2. BYDUREON [Suspect]
     Active Substance: EXENATIDE
     Indication: WEIGHT DECREASED
     Route: 058
  3. METFORMIN [Concomitant]
     Active Substance: METFORMIN HYDROCHLORIDE
     Indication: DIABETES MELLITUS
     Route: 048
  4. GABAPENTIN. [Concomitant]
     Active Substance: GABAPENTIN
     Indication: NEUROPATHY PERIPHERAL
     Dosage: 300 MG TWO PILLS NIGHTLY
  5. FISH OIL [Concomitant]
     Active Substance: FISH OIL
  6. INSULIN [Concomitant]
     Active Substance: INSULIN NOS
     Dosage: 70/30 80 UNITS EVERY DAY AND 75 UNITS AT NIGHT
  7. TRAZODONE [Concomitant]
     Active Substance: TRAZODONE HYDROCHLORIDE
     Indication: SLEEP DISORDER
     Route: 048
  8. BYDUREON [Suspect]
     Active Substance: EXENATIDE
     Indication: TYPE 2 DIABETES MELLITUS
     Route: 058
     Dates: start: 20160610
  9. BYDUREON [Suspect]
     Active Substance: EXENATIDE
     Indication: WEIGHT DECREASED
     Route: 058
     Dates: start: 20160610
  10. FLEXPEN [Concomitant]
     Active Substance: UNSPECIFIED INGREDIENT
     Indication: TYPE 2 DIABETES MELLITUS
  11. HUMULIN R [Concomitant]
     Active Substance: INSULIN HUMAN
     Indication: TYPE 2 DIABETES MELLITUS
     Dosage: 500
     Route: 058

REACTIONS (21)
  - Sleep apnoea syndrome [Unknown]
  - Overdose [Unknown]
  - Vision blurred [Unknown]
  - Asthenia [Unknown]
  - Injection site extravasation [Recovered/Resolved]
  - Off label use [Not Recovered/Not Resolved]
  - Product dose omission [Unknown]
  - Carpal tunnel syndrome [Not Recovered/Not Resolved]
  - Injection site swelling [Unknown]
  - Needle issue [Unknown]
  - Nausea [Recovered/Resolved]
  - Blood glucose increased [Unknown]
  - Neuropathy peripheral [Unknown]
  - Tremor [Recovered/Resolved]
  - Headache [Not Recovered/Not Resolved]
  - Blood glucose decreased [Unknown]
  - Incorrect dose administered [Recovered/Resolved]
  - Injection site pain [Recovered/Resolved]
  - Injection site haemorrhage [Recovered/Resolved]
  - Product use in unapproved indication [Unknown]
  - Device malfunction [Unknown]

NARRATIVE: CASE EVENT DATE: 20160610
